FAERS Safety Report 6248647-4 (Version None)
Quarter: 2009Q2

REPORT INFORMATION
  Report Type: 
  Country: None (occurrence: None)
  Receive Date: 20090629
  Receipt Date: 20090622
  Transmission Date: 20091009
  Serious: Yes (Other)
  Sender: FDA-Public Use
  Company Number: FR-NAPPMUNDI-GBR-2009-0005275

PATIENT
  Sex: Male

DRUGS (1)
  1. OXYNORM [Suspect]
     Indication: DRUG USE FOR UNKNOWN INDICATION
     Dosage: 40 MG, DAILY
     Route: 042
     Dates: start: 20090601

REACTIONS (3)
  - ACCIDENTAL OVERDOSE [None]
  - INCORRECT DOSE ADMINISTERED [None]
  - SOMNOLENCE [None]
